FAERS Safety Report 17613175 (Version 5)
Quarter: 2020Q3

REPORT INFORMATION
  Report Type: Spontaneous
  Country: CA (occurrence: CA)
  Receive Date: 20200402
  Receipt Date: 20200813
  Transmission Date: 20201102
  Serious: Yes (Other)
  Sender: FDA-Public Use
  Company Number: CA-CELLTRION INC.-2019CA023060

PATIENT

DRUGS (10)
  1. INFLECTRA [Suspect]
     Active Substance: INFLIXIMAB-DYYB
     Dosage: 200 MG, THEN EVERY 8 WEEKS
     Route: 042
     Dates: start: 20190730
  2. INFLECTRA [Suspect]
     Active Substance: INFLIXIMAB-DYYB
     Dosage: 200 MG, THEN EVERY 8 WEEKS
     Route: 042
     Dates: start: 20191121
  3. INFLECTRA [Suspect]
     Active Substance: INFLIXIMAB-DYYB
     Dosage: 200 MG, THEN EVERY 8 WEEKS
     Route: 042
     Dates: start: 20200418
  4. INFLECTRA [Suspect]
     Active Substance: INFLIXIMAB-DYYB
     Dosage: 200 MG, THEN EVERY 8 WEEKS
     Route: 042
     Dates: start: 20200609
  5. INFLECTRA [Suspect]
     Active Substance: INFLIXIMAB-DYYB
     Indication: RHEUMATOID ARTHRITIS
     Dosage: 200 MG, THEN EVERY 8 WEEKS
     Route: 042
  6. REMICADE [Concomitant]
     Active Substance: INFLIXIMAB
     Dosage: UNK (UNK STOP) ? DISCONTINUED
     Route: 065
  7. METHOTREXATE. [Concomitant]
     Active Substance: METHOTREXATE
     Dosage: 15 MG, WEEKLY
     Route: 048
  8. INFLECTRA [Suspect]
     Active Substance: INFLIXIMAB-DYYB
     Dosage: 200 MG, THEN EVERY 8 WEEKS
     Route: 042
     Dates: start: 20200117
  9. INFLECTRA [Suspect]
     Active Substance: INFLIXIMAB-DYYB
     Dosage: 200 MG, THEN EVERY 8 WEEKS
     Route: 042
     Dates: start: 20200806
  10. CEFUROXIME. [Concomitant]
     Active Substance: CEFUROXIME
     Dosage: 500 MG, 2X/DAY
     Route: 048
     Dates: start: 20200320

REACTIONS (8)
  - Inappropriate schedule of product administration [Unknown]
  - Dementia [Unknown]
  - Blood pressure increased [Unknown]
  - Weight decreased [Unknown]
  - Intentional product use issue [Unknown]
  - Off label use [Unknown]
  - Urinary tract infection [Unknown]
  - Product use issue [Unknown]

NARRATIVE: CASE EVENT DATE: 20190730
